FAERS Safety Report 17662377 (Version 2)
Quarter: 2020Q2

REPORT INFORMATION
  Report Type: Spontaneous
  Country: BR (occurrence: BR)
  Receive Date: 20200413
  Receipt Date: 20200424
  Transmission Date: 20200713
  Serious: Yes (Other)
  Sender: FDA-Public Use
  Company Number: BR-SAMSUNG BIOEPIS-SB-2020-10589

PATIENT
  Age: 62 Year
  Sex: Female

DRUGS (2)
  1. BRENZYS [Suspect]
     Active Substance: ETANERCEPT
     Indication: PSORIATIC ARTHROPATHY
     Route: 058
     Dates: start: 2019
  2. ARADOIS [Concomitant]
     Active Substance: LOSARTAN POTASSIUM
     Indication: PRODUCT USED FOR UNKNOWN INDICATION
     Dosage: UNKNOWN
     Route: 065

REACTIONS (16)
  - Coronavirus infection [Recovered/Resolved]
  - Nasal septum deviation [Recovered/Resolved]
  - Influenza like illness [Recovered/Resolved]
  - Bronchitis [Recovered/Resolved]
  - Nasal congestion [Recovered/Resolved]
  - Rhinorrhoea [Recovered/Resolved]
  - Product use in unapproved indication [Unknown]
  - Respiratory tract infection [Recovered/Resolved]
  - Influenza [Recovered/Resolved]
  - Skin lesion [Recovered/Resolved]
  - Oropharyngeal discomfort [Recovered/Resolved]
  - Body height decreased [Unknown]
  - Sneezing [Recovered/Resolved]
  - Exposure to communicable disease [Unknown]
  - Product substitution issue [Unknown]
  - Rhinitis allergic [Recovered/Resolved]

NARRATIVE: CASE EVENT DATE: 2019
